FAERS Safety Report 20805144 (Version 1)
Quarter: 2022Q2

REPORT INFORMATION
  Report Type: Spontaneous
  Country: US (occurrence: US)
  Receive Date: 20220509
  Receipt Date: 20220509
  Transmission Date: 20220721
  Serious: Yes (Death, Other)
  Sender: FDA-Public Use
  Company Number: US-MALLINCKRODT-T202202238

PATIENT
  Age: 48 Year
  Sex: Male
  Weight: 73 kg

DRUGS (7)
  1. INOMAX [Suspect]
     Active Substance: NITRIC OXIDE
     Indication: COVID-19
     Dosage: 20 PPM, INHALATION
     Route: 055
  2. INOMAX [Suspect]
     Active Substance: NITRIC OXIDE
     Dosage: 30 PPM, INHALATION
     Route: 055
  3. MIDAZOLAM [Concomitant]
     Active Substance: MIDAZOLAM
     Indication: Sedation
     Dosage: UNK
     Route: 065
  4. PROPOFOL [Concomitant]
     Active Substance: PROPOFOL
     Indication: Sedation
     Dosage: UNK
     Route: 065
  5. PROPOFOL [Concomitant]
     Active Substance: PROPOFOL
     Dosage: UNK, DOSE DECREASED
     Route: 065
  6. CISATRACURIUM [Concomitant]
     Active Substance: CISATRACURIUM
     Indication: Sedation
     Dosage: UNK
     Route: 065
  7. FENTANYL [Concomitant]
     Active Substance: FENTANYL
     Indication: Sedation
     Dosage: UNK
     Route: 065

REACTIONS (6)
  - Death [Fatal]
  - Traumatic lung injury [Unknown]
  - Blood pressure decreased [Unknown]
  - Hypoxia [Unknown]
  - Product use in unapproved indication [Unknown]
  - Product use issue [Unknown]
